FAERS Safety Report 4398910-7 (Version None)
Quarter: 2004Q2

REPORT INFORMATION
  Report Type: 
  Country: None (occurrence: None)
  Receive Date: 20040621
  Receipt Date: 20040210
  Transmission Date: 20050107
  Serious: Yes (Hospitalization, Other)
  Sender: FDA-Public Use
  Company Number: USA-2003-0008378

PATIENT
  Age: 17 Year
  Sex: Male

DRUGS (6)
  1. OXYCONTIN [Suspect]
  2. VALIUM [Suspect]
  3. XANAX [Suspect]
  4. VICODIN [Suspect]
  5. PERCOCET [Suspect]
  6. ALCOHOL (ETHANOL) [Suspect]

REACTIONS (3)
  - DRUG ABUSER [None]
  - DRUG DEPENDENCE [None]
  - SUICIDE ATTEMPT [None]
